FAERS Safety Report 9696158 (Version 1)
Quarter: 2013Q4

REPORT INFORMATION
  Report Type: Spontaneous
  Country: US (occurrence: None)
  Receive Date: 20131115
  Receipt Date: 20131115
  Transmission Date: 20140711
  Serious: Yes (Hospitalization, Other)
  Sender: FDA-Public Use
  Company Number: 13-04643

PATIENT
  Age: 71 Year
  Sex: Female

DRUGS (4)
  1. ALBUTEROL SULFATE [Suspect]
     Indication: ASTHMA
     Dosage: 1 VIAL BID 054
     Dates: start: 20130903, end: 20130918
  2. BROVANA [Concomitant]
  3. BUDESONIDE [Concomitant]
  4. OXYGEN [Concomitant]

REACTIONS (4)
  - Pneumonia bacterial [None]
  - Respiratory distress [None]
  - Chest pain [None]
  - Pain in extremity [None]
